FAERS Safety Report 9454323 (Version 4)
Quarter: 2013Q4

REPORT INFORMATION
  Report Type: Spontaneous
  Country: IT (occurrence: IT)
  Receive Date: 20130812
  Receipt Date: 20131017
  Transmission Date: 20140711
  Serious: Yes (Hospitalization)
  Sender: FDA-Public Use
  Company Number: IT-PFIZER INC-2013230260

PATIENT
  Age: 70 Year
  Sex: Male

DRUGS (2)
  1. LEVOFLOXACIN [Suspect]
     Indication: INFECTION
     Dosage: 500 MG, DAILY
     Route: 048
     Dates: start: 20130501, end: 20130507
  2. GEMCITABINE HYDROCHLORIDE [Suspect]
     Indication: PANCREATIC CARCINOMA
     Dosage: 1900 MG, CYCLIC
     Route: 042
     Dates: start: 20130101, end: 20130429

REACTIONS (5)
  - Oedema [Recovering/Resolving]
  - Pleural effusion [Recovering/Resolving]
  - Renal failure acute [Recovering/Resolving]
  - Thrombotic microangiopathy [Recovering/Resolving]
  - Haemangioma of liver [Unknown]
